FAERS Safety Report 7625435-5 (Version None)
Quarter: 2011Q3

REPORT INFORMATION
  Report Type: 
  Country: None (occurrence: None)
  Receive Date: 20110721
  Receipt Date: 20110711
  Transmission Date: 20111222
  Serious: No
  Sender: FDA-Public Use
  Company Number: US-JNJFOC-20110706713

PATIENT
  Sex: Female
  Weight: 49.9 kg

DRUGS (1)
  1. FENTANYL-100 [Suspect]
     Indication: PRODUCT USED FOR UNKNOWN INDICATION
     Route: 062
     Dates: start: 20110711, end: 20110711

REACTIONS (7)
  - EXPIRED DRUG ADMINISTERED [None]
  - VOMITING [None]
  - HYPOAESTHESIA [None]
  - DECREASED APPETITE [None]
  - INTENTIONAL DRUG MISUSE [None]
  - DIZZINESS [None]
  - MALAISE [None]
